FAERS Safety Report 23135160 (Version 1)
Quarter: 2023Q4

REPORT INFORMATION
  Report Type: Spontaneous
  Country: US (occurrence: US)
  Receive Date: 20231101
  Receipt Date: 20231101
  Transmission Date: 20240109
  Serious: No
  Sender: FDA-Public Use
  Company Number: US-AMGEN-USASP2023193434

PATIENT
  Sex: Female

DRUGS (2)
  1. REPATHA [Suspect]
     Active Substance: EVOLOCUMAB
     Indication: Osteoporosis
     Dosage: 140 MILLIGRAM, Q2WK
     Route: 058
  2. TYMLOS [Concomitant]
     Active Substance: ABALOPARATIDE

REACTIONS (4)
  - Atrophic vulvovaginitis [Unknown]
  - Angiopathy [Unknown]
  - Injection site pain [Unknown]
  - Nasopharyngitis [Not Recovered/Not Resolved]
